FAERS Safety Report 18972643 (Version 1)
Quarter: 2021Q1

REPORT INFORMATION
  Report Type: Report from Study
  Country: US (occurrence: US)
  Receive Date: 20210305
  Receipt Date: 20210305
  Transmission Date: 20210420
  Serious: No
  Sender: FDA-Public Use
  Company Number: NVSC2021US043560

PATIENT
  Age: 63 Year
  Sex: Male

DRUGS (1)
  1. ENTRESTO [Suspect]
     Active Substance: SACUBITRIL\VALSARTAN
     Indication: CARDIAC FAILURE
     Dosage: 97.1 MG, BID (97.103 MG)
     Route: 048
     Dates: start: 201802

REACTIONS (4)
  - Throat clearing [Unknown]
  - Cough [Unknown]
  - Heart rate increased [Unknown]
  - Overweight [Unknown]

NARRATIVE: CASE EVENT DATE: 20210223
